FAERS Safety Report 25478131 (Version 1)
Quarter: 2025Q2

REPORT INFORMATION
  Report Type: Spontaneous
  Country: SE (occurrence: SE)
  Receive Date: 20250625
  Receipt Date: 20250625
  Transmission Date: 20250717
  Serious: Yes (Other)
  Sender: BAYER HEALTHCARE PHARMACEUTICALS INC.
  Company Number: SE-BAYER-2025A083876

PATIENT

DRUGS (3)
  1. XOFIGO [Suspect]
     Active Substance: RADIUM RA-223 DICHLORIDE
  2. XOFIGO [Suspect]
     Active Substance: RADIUM RA-223 DICHLORIDE
  3. XOFIGO [Suspect]
     Active Substance: RADIUM RA-223 DICHLORIDE

REACTIONS (3)
  - Metastases to liver [None]
  - Metastases to lung [None]
  - Metastases to lymph nodes [None]
